FAERS Safety Report 5280413-9 (Version None)
Quarter: 2007Q1

REPORT INFORMATION
  Report Type: 
  Country: None (occurrence: None)
  Receive Date: 20070326
  Receipt Date: 20070326
  Transmission Date: 20070707
  Serious: Yes (Other)
  Sender: FDA-Public Use
  Company Number: None

PATIENT
  Sex: Female
  Weight: 61.2356 kg

DRUGS (1)
  1. LEVOFLOXACIN [Suspect]
     Indication: URINARY TRACT INFECTION
     Dosage: 3, 1 A DAY PO
     Route: 048
     Dates: start: 20061222, end: 20061224

REACTIONS (4)
  - ABASIA [None]
  - CONTUSION [None]
  - MUSCLE STRAIN [None]
  - SWELLING [None]
